FAERS Safety Report 5796376-3 (Version None)
Quarter: 2008Q2

REPORT INFORMATION
  Report Type: 
  Country: None (occurrence: None)
  Receive Date: 20080630
  Receipt Date: 20080630
  Transmission Date: 20081010
  Serious: Yes (Other)
  Sender: FDA-Public Use
  Company Number: None

PATIENT
  Age: 44 Year
  Sex: Female
  Weight: 104.3273 kg

DRUGS (1)
  1. ALLI [Suspect]
     Indication: WEIGHT DECREASED
     Dosage: ONE CAPSULE THREE TIMES A DAY PO
     Route: 048
     Dates: start: 20080621, end: 20080624

REACTIONS (3)
  - BLINDNESS TRANSIENT [None]
  - HEADACHE [None]
  - VISION BLURRED [None]
